FAERS Safety Report 25708526 (Version 3)
Quarter: 2025Q4

REPORT INFORMATION
  Report Type: Report from Study
  Country: US (occurrence: US)
  Receive Date: 20250821
  Receipt Date: 20251106
  Transmission Date: 20260117
  Serious: Yes (Death, Hospitalization)
  Sender: JOHNSON AND JOHNSON
  Company Number: US-JNJFOC-20250823423

PATIENT
  Age: 73 Year
  Sex: Female

DRUGS (2)
  1. SPRAVATO [Suspect]
     Active Substance: ESKETAMINE
     Indication: Depression
     Dosage: ?84 MG, 24 TOTAL DOSES? 24HG047 STARTED FROM 15-JAN-2025 DOSE
     Route: 045
     Dates: start: 20250102, end: 20250609
  2. SPRAVATO [Suspect]
     Active Substance: ESKETAMINE
     Indication: Major depression
     Dosage: ?56 MG, 3 TOTAL DOSES?, 24BG703 UPTO 06-JAN-2025 DOSE
     Route: 045
     Dates: start: 20241223, end: 20241230

REACTIONS (2)
  - Completed suicide [Fatal]
  - Neoplasm of orbit [Unknown]

NARRATIVE: CASE EVENT DATE: 20250626
